FAERS Safety Report 5932971-6 (Version None)
Quarter: 2008Q4

REPORT INFORMATION
  Report Type: 
  Country: None (occurrence: None)
  Receive Date: 20081027
  Receipt Date: 20081027
  Transmission Date: 20090506
  Serious: No
  Sender: FDA-Public Use
  Company Number: None

PATIENT
  Age: 57 Year
  Sex: Male
  Weight: 76.2043 kg

DRUGS (2)
  1. CIPROFLOXACIN HCL [Suspect]
     Indication: BACTERIAL INFECTION
     Dosage: 1 TABLET EVERY 12 HOURS
     Dates: start: 20060701, end: 20060801
  2. CIPROFLOXACIN HCL [Suspect]
     Indication: PROSTATITIS
     Dosage: 1 TABLET EVERY 12 HOURS
     Dates: start: 20060701, end: 20060801

REACTIONS (7)
  - ANORECTAL DISCOMFORT [None]
  - ARTHRALGIA [None]
  - DIARRHOEA [None]
  - MUSCULOSKELETAL PAIN [None]
  - PAIN IN EXTREMITY [None]
  - RASH [None]
  - SKIN EXFOLIATION [None]
